FAERS Safety Report 9449464 (Version 3)
Quarter: 2013Q4

REPORT INFORMATION
  Report Type: Spontaneous
  Country: US (occurrence: US)
  Receive Date: 20130809
  Receipt Date: 20131003
  Transmission Date: 20140711
  Serious: Yes (Hospitalization, Other)
  Sender: FDA-Public Use
  Company Number: US-AMGEN-USASP2013044791

PATIENT
  Age: 86 Year
  Sex: Male
  Weight: 72.56 kg

DRUGS (31)
  1. PROLIA [Suspect]
     Indication: BONE LOSS
     Dosage: 60 MG, Q6MO
     Route: 058
     Dates: start: 20130524
  2. PROLIA [Suspect]
     Indication: PROSTATE CANCER METASTATIC
  3. ALENDRONATE SODIUM [Concomitant]
     Dosage: 70 MG, UNK
     Route: 048
  4. ATORVASTATIN CALCIUM [Concomitant]
     Dosage: 10 MG, QD
     Route: 048
  5. BICALUTAMIDE [Concomitant]
     Dosage: 50 MG, QD
     Route: 048
  6. CARVEDILOL [Concomitant]
     Dosage: 6.25 MG, BID
     Route: 048
  7. FENOFIBRATE [Concomitant]
     Dosage: 145 MG, QD
     Route: 048
  8. FUROSEMIDE [Concomitant]
     Dosage: 20 MG, UNK
     Route: 048
  9. KLOR-CON M20 [Concomitant]
     Dosage: 20 MEQ, QD
     Route: 048
  10. LISINOPRIL [Concomitant]
     Dosage: 5 MG, QD
     Route: 048
  11. LORATADINE [Concomitant]
     Dosage: 10 MG, QD
     Route: 048
  12. PREDNISONE [Concomitant]
     Dosage: 20 MG, QD
     Route: 048
  13. SPIRIVA [Concomitant]
     Indication: ASTHMA
     Dosage: 2 PUFFS, QD
     Route: 055
  14. SPIRIVA [Concomitant]
     Indication: SEASONAL ALLERGY
  15. TAMSULOSIN HCL [Concomitant]
     Dosage: 0.4 MG, QD
     Route: 048
  16. ULTRAM                             /00599202/ [Concomitant]
     Dosage: 50 MG, TID,PRN
     Route: 048
  17. WARFARIN SODIUM [Concomitant]
     Dosage: 4 MG, QD
     Route: 048
  18. FLOMAX                             /00889901/ [Concomitant]
     Dosage: 0.4 MG, QD
     Route: 048
  19. COREG [Concomitant]
     Dosage: 6.25 MG, QD
     Route: 048
  20. TRAMADOL [Concomitant]
     Dosage: 50 MG, BID
     Route: 048
  21. COUMADIN                           /00014802/ [Concomitant]
     Dosage: 4 MG, QD
     Route: 048
  22. CASODEX [Concomitant]
     Dosage: 50 MG, QD
     Route: 048
  23. TRICOR                             /00090101/ [Concomitant]
     Dosage: 145 MG, QD
     Route: 048
  24. LIPITOR [Concomitant]
     Dosage: 10 MG, QD
     Route: 048
  25. POTASSIUM CHLORIDE [Concomitant]
     Dosage: 20 MEQ, QD
     Route: 048
  26. DUONEB [Concomitant]
     Dosage: 1 SPRAY, QD
     Route: 055
  27. SINGULAIR [Concomitant]
     Dosage: 10 MG, QD
     Route: 048
  28. LASIX                              /00032601/ [Concomitant]
     Dosage: 20 MG, QD
     Route: 048
  29. PROTONIX [Concomitant]
     Dosage: 40 MG, QD
     Route: 048
  30. ZYRTEC [Concomitant]
     Indication: HYPERSENSITIVITY
  31. CALCIUM [Concomitant]

REACTIONS (14)
  - Groin pain [Not Recovered/Not Resolved]
  - Arthralgia [Not Recovered/Not Resolved]
  - Small intestinal obstruction [Recovered/Resolved]
  - Abdominal pain [Recovered/Resolved]
  - Hypocalcaemia [Not Recovered/Not Resolved]
  - Pain [Not Recovered/Not Resolved]
  - Neck pain [Not Recovered/Not Resolved]
  - Myalgia [Not Recovered/Not Resolved]
  - Sleep disorder [Unknown]
  - Muscle spasms [Unknown]
  - Prostatic specific antigen abnormal [Unknown]
  - Local swelling [Recovered/Resolved]
  - Musculoskeletal pain [Not Recovered/Not Resolved]
  - Pain in extremity [Not Recovered/Not Resolved]
